FAERS Safety Report 25930864 (Version 1)
Quarter: 2025Q4

REPORT INFORMATION
  Report Type: Spontaneous
  Country: EU (occurrence: EU)
  Receive Date: 20251016
  Receipt Date: 20251016
  Transmission Date: 20260117
  Serious: Yes (Other)
  Sender: MYLAN
  Company Number: EU-MYLANLABS-2025M1087505

PATIENT
  Age: 53 Year
  Sex: Female

DRUGS (8)
  1. ALLOPURINOL [Suspect]
     Active Substance: ALLOPURINOL
     Indication: Granuloma
     Dosage: UNK UNK, TID, IN ANIONIC OIL-IN-WATER EMULSION; THREE TIMES DAILY
  2. ALLOPURINOL [Suspect]
     Active Substance: ALLOPURINOL
     Indication: Skin reaction
  3. TRIAMCINOLONE [Suspect]
     Active Substance: TRIAMCINOLONE
     Indication: Granuloma
     Dosage: UNK
  4. TRIAMCINOLONE [Suspect]
     Active Substance: TRIAMCINOLONE
     Indication: Skin reaction
  5. BETAMETHASONE [Suspect]
     Active Substance: BETAMETHASONE
     Indication: Granuloma
     Dosage: UNK
  6. BETAMETHASONE [Suspect]
     Active Substance: BETAMETHASONE
     Indication: Skin reaction
  7. FUSIDIC ACID [Suspect]
     Active Substance: FUSIDIC ACID
     Indication: Granuloma
     Dosage: UNK, BID
  8. FUSIDIC ACID [Suspect]
     Active Substance: FUSIDIC ACID
     Indication: Skin reaction
     Dosage: UNK, FURTHER INCREASED TWICE AT ONE-MONTH INTERVAL

REACTIONS (3)
  - Drug ineffective for unapproved indication [Unknown]
  - Skin irritation [Recovered/Resolved]
  - Off label use [Unknown]
